FAERS Safety Report 24101486 (Version 2)
Quarter: 2024Q3

REPORT INFORMATION
  Report Type: Spontaneous
  Country: CN (occurrence: CN)
  Receive Date: 20240717
  Receipt Date: 20240725
  Transmission Date: 20241017
  Serious: Yes (Life-Threatening, Hospitalization, Other)
  Sender: ALKEM
  Company Number: None

PATIENT
  Age: 66 Year
  Sex: Male

DRUGS (8)
  1. LINEZOLID [Suspect]
     Active Substance: LINEZOLID
     Indication: Nocardiosis
     Dosage: UNK
     Route: 065
  2. AMOXICILLIN [Suspect]
     Active Substance: AMOXICILLIN
     Indication: Antibiotic therapy
     Dosage: UNK (CAPSULE)
     Route: 048
     Dates: start: 20211206
  3. AMOXICILLIN [Suspect]
     Active Substance: AMOXICILLIN
     Indication: Epididymitis
  4. CEFTRIAXONE [Suspect]
     Active Substance: CEFTRIAXONE\CEFTRIAXONE SODIUM
     Indication: Epididymitis
     Dosage: UNK
     Route: 065
     Dates: start: 20211208
  5. PIPERACILLIN SODIUM\TAZOBACTAM SODIUM [Suspect]
     Active Substance: PIPERACILLIN SODIUM\TAZOBACTAM SODIUM
     Indication: Nocardiosis
     Dosage: UNK
     Route: 065
  6. SULFAMETHOXAZOLE [Suspect]
     Active Substance: SULFAMETHOXAZOLE
     Indication: Nocardiosis
     Dosage: UNK
     Route: 065
  7. CEFOPERAZONE SODIUM\SULBACTAM SODIUM [Suspect]
     Active Substance: CEFOPERAZONE SODIUM\SULBACTAM SODIUM
     Indication: Pyrexia
     Dosage: UNK
     Route: 065
     Dates: start: 20211209
  8. PREDNISONE [Concomitant]
     Active Substance: PREDNISONE
     Indication: Prophylaxis
     Dosage: UNK
     Route: 065

REACTIONS (3)
  - Renal failure [Recovered/Resolved]
  - Hyperkalaemia [Recovered/Resolved]
  - Oliguria [Recovered/Resolved]

NARRATIVE: CASE EVENT DATE: 20211222
